FAERS Safety Report 8611523-3 (Version None)
Quarter: 2012Q3

REPORT INFORMATION
  Report Type: 
  Country: None (occurrence: None)
  Receive Date: 20120809
  Receipt Date: 20120725
  Transmission Date: 20120928
  Serious: Yes (Death, Hospitalization, Other)
  Sender: FDA-Public Use
  Company Number: 2012MA009136

PATIENT
  Age: 16 Year
  Sex: Female

DRUGS (13)
  1. KADIAN [Suspect]
     Indication: COMPLETED SUICIDE
     Dosage: PO
     Route: 048
  2. KADIAN [Suspect]
     Indication: INTENTIONAL OVERDOSE
     Dosage: PO
     Route: 048
  3. PHENAZOPYRIDINE HCL TAB [Suspect]
     Dosage: PO
     Route: 048
  4. HYDROCODONE [Suspect]
  5. ACETAMINOPHEN AND CODEINE PHOSPHATE [Suspect]
     Dosage: PO
     Route: 048
  6. OXYCODONE HCL [Suspect]
  7. TRICYCLIC ANTIDEPRESSANT [Suspect]
     Dosage: PO
     Route: 048
  8. METOPROLOL TARTRATE [Suspect]
     Dosage: PO
     Route: 048
  9. PHENAZOPYRIDINE HCL TAB [Suspect]
     Dosage: PO
     Route: 048
  10. AMITRIPTYLINE HYDROCHLORIDE [Suspect]
  11. GABAPENTIN [Suspect]
     Dosage: PO
     Route: 048
  12. CIPROFLOXACIN [Suspect]
     Dosage: PO
     Route: 048
  13. CONTRACEPTIVE IMPLANTABLE DEVICE [Concomitant]

REACTIONS (8)
  - BLOOD PRESSURE SYSTOLIC DECREASED [None]
  - HEART RATE INCREASED [None]
  - BLOOD GLUCOSE INCREASED [None]
  - VENTRICULAR FIBRILLATION [None]
  - BRAIN OEDEMA [None]
  - CEREBRAL INFARCTION [None]
  - CARDIO-RESPIRATORY ARREST [None]
  - UNRESPONSIVE TO STIMULI [None]
